FAERS Safety Report 9752310 (Version 1)
Quarter: 2013Q4

REPORT INFORMATION
  Report Type: Spontaneous
  Country: US (occurrence: None)
  Receive Date: 20131211
  Receipt Date: 20131211
  Transmission Date: 20140711
  Serious: Yes (Hospitalization)
  Sender: FDA-Public Use
  Company Number: None

PATIENT
  Age: 71 Year
  Sex: Female
  Weight: 79.2 kg

DRUGS (11)
  1. OFATUMUMAB [Suspect]
     Indication: CHRONIC LYMPHOCYTIC LEUKAEMIA
     Route: 042
     Dates: start: 20130718, end: 20131125
  2. ALEMTUZUMAB [Suspect]
     Indication: CHRONIC LYMPHOCYTIC LEUKAEMIA
     Route: 058
     Dates: start: 20131125, end: 20131204
  3. FAMOTIDINE [Concomitant]
  4. LEVOFLOXACIN [Concomitant]
  5. LORAZEPAM [Concomitant]
  6. SINGULAIR [Concomitant]
  7. LEVOTHYROXINE SODIUM [Concomitant]
  8. TRIMETHOPRIM/SULFAMETHOXAZOLE [Concomitant]
  9. VALACYCLOVIR [Concomitant]
  10. VORICONAZOLE [Concomitant]
  11. ZYRTEC [Concomitant]

REACTIONS (3)
  - Upper respiratory tract infection [None]
  - Pneumonia [None]
  - Pneumonia [None]
